FAERS Safety Report 18355951 (Version 1)
Quarter: 2020Q4

REPORT INFORMATION
  Report Type: Report from Study
  Country: ES (occurrence: ES)
  Receive Date: 20201007
  Receipt Date: 20201007
  Transmission Date: 20210114
  Serious: Yes (Other)
  Sender: FDA-Public Use
  Company Number: ES-ELI_LILLY_AND_COMPANY-ES202009011437

PATIENT
  Age: 88 Year
  Sex: Female

DRUGS (2)
  1. FORSTEO [Suspect]
     Active Substance: TERIPARATIDE
     Indication: OSTEOPOROSIS
     Dosage: 20 UG, DAILY
     Route: 058
     Dates: start: 20180727
  2. SINTROM [Concomitant]
     Active Substance: ACENOCOUMAROL
     Indication: PULMONARY THROMBOSIS
     Dosage: UNK

REACTIONS (13)
  - Sensory disturbance [Unknown]
  - Lip injury [Unknown]
  - Joint injury [Unknown]
  - Micturition urgency [Unknown]
  - Urinary incontinence [Unknown]
  - Loss of consciousness [Unknown]
  - Blood pressure decreased [Unknown]
  - Rib fracture [Unknown]
  - Somnolence [Unknown]
  - Fall [Unknown]
  - Asthenia [Unknown]
  - Alopecia [Unknown]
  - Incorrect product administration duration [Not Recovered/Not Resolved]

NARRATIVE: CASE EVENT DATE: 202004
